FAERS Safety Report 10418866 (Version 1)
Quarter: 2014Q2

REPORT INFORMATION
  Report Type: Report from Study
  Country: US (occurrence: None)
  Receive Date: 20140627
  Receipt Date: 20140627
  Transmission Date: 20141212
  Serious: No
  Sender: FDA-Public Use
  Company Number: CABO-14004311

PATIENT
  Age: 30 Year
  Sex: Female

DRUGS (2)
  1. COMETRIQ (CABOZANTINIB) CAPSULE [Suspect]
     Indication: BRAIN NEOPLASM MALIGNANT
     Route: 048
     Dates: start: 20140415
  2. AMBIEN (ZOLPIDEM TARTRATE) [Concomitant]

REACTIONS (2)
  - Infection [None]
  - Off label use [None]
